FAERS Safety Report 5443478-7 (Version None)
Quarter: 2007Q3

REPORT INFORMATION
  Report Type: 
  Country: None (occurrence: None)
  Receive Date: 20070831
  Receipt Date: 20070816
  Transmission Date: 20080115
  Serious: Yes (Hospitalization, Other)
  Sender: FDA-Public Use
  Company Number: 236514K07USA

PATIENT
  Age: 21 Year
  Sex: Female
  Weight: 99.7913 kg

DRUGS (2)
  1. REBIF [Suspect]
     Indication: MULTIPLE SCLEROSIS
     Dates: start: 20061027, end: 20070601
  2. LOESTRIN 24 FE [Concomitant]

REACTIONS (7)
  - BACK PAIN [None]
  - CHOLELITHIASIS [None]
  - DYSPEPSIA [None]
  - GALLBLADDER DISORDER [None]
  - PANCREATITIS [None]
  - VIRAL INFECTION [None]
  - VOMITING [None]
